FAERS Safety Report 10665442 (Version 1)
Quarter: 2014Q4

REPORT INFORMATION
  Report Type: Report from Study
  Country: US (occurrence: US)
  Receive Date: 20141219
  Receipt Date: 20141219
  Transmission Date: 20150529
  Serious: Yes (Other)
  Sender: FDA-Public Use
  Company Number: US-GILEAD-2014-0127644

PATIENT
  Sex: Female

DRUGS (3)
  1. SOFOSBUVIR [Suspect]
     Active Substance: SOFOSBUVIR
     Indication: HEPATITIS C
     Dosage: 400 MG, QD
     Route: 048
     Dates: start: 201410
  2. RITUXAN [Concomitant]
     Active Substance: RITUXIMAB
     Indication: LYMPHOMA
     Dosage: UNK
     Route: 065
     Dates: end: 20141118
  3. RIBAVIRIN. [Concomitant]
     Active Substance: RIBAVIRIN
     Indication: HEPATITIS C
     Dosage: 1000 MG, QD
     Route: 048
     Dates: start: 201410

REACTIONS (9)
  - Mental impairment [Unknown]
  - Malaise [Unknown]
  - Agitation [Unknown]
  - Asthenia [Unknown]
  - Feeling hot [Unknown]
  - Mood swings [Unknown]
  - Emotional distress [Unknown]
  - Temperature intolerance [Unknown]
  - Nausea [Unknown]
